FAERS Safety Report 4476499-1 (Version None)
Quarter: 2004Q4

REPORT INFORMATION
  Report Type: 
  Country: None (occurrence: None)
  Receive Date: 20041013
  Receipt Date: 20040927
  Transmission Date: 20050328
  Serious: Yes (Other)
  Sender: FDA-Public Use
  Company Number: USA040979312

PATIENT
  Age: 60 Year
  Sex: Male

DRUGS (2)
  1. XIGRIS [Suspect]
     Indication: PNEUMONIA
     Dates: start: 20040901
  2. ANTIBIOTICS [Concomitant]

REACTIONS (3)
  - BLOOD PRESSURE DECREASED [None]
  - FAECAL OCCULT BLOOD POSITIVE [None]
  - GENERAL PHYSICAL HEALTH DETERIORATION [None]
